FAERS Safety Report 8131530-7 (Version None)
Quarter: 2012Q1

REPORT INFORMATION
  Report Type: 
  Country: None (occurrence: None)
  Receive Date: 20120103
  Receipt Date: 20111024
  Transmission Date: 20120608
  Serious: No
  Sender: FDA-Public Use
  Company Number: AE-2011-001220

PATIENT
  Age: 51 Year
  Sex: Female
  Weight: 140.6151 kg

DRUGS (6)
  1. INCIVEK [Suspect]
     Dosage: 2250 MG (750 MG,3 IN 1 D),ORAL
     Route: 048
     Dates: start: 20110708, end: 20110901
  2. RIBAPAK (RIBAVIRIN) [Concomitant]
  3. ZOLOFT [Concomitant]
  4. SONATA [Concomitant]
  5. TRINESSA (NORGESTIMATE) [Concomitant]
  6. PEGASYS [Concomitant]

REACTIONS (9)
  - HAEMATOCHEZIA [None]
  - RASH GENERALISED [None]
  - INSOMNIA [None]
  - INJECTION SITE ERYTHEMA [None]
  - NAUSEA [None]
  - DIARRHOEA [None]
  - SKIN BURNING SENSATION [None]
  - PRURITUS GENERALISED [None]
  - ANAL PRURITUS [None]
